FAERS Safety Report 19702342 (Version 2)
Quarter: 2021Q3

REPORT INFORMATION
  Report Type: Report from Study
  Country: GB (occurrence: GB)
  Receive Date: 20210814
  Receipt Date: 20210827
  Transmission Date: 20211014
  Serious: Yes (Hospitalization, Other)
  Sender: FDA-Public Use
  Company Number: NVSC2021GB175560

PATIENT
  Sex: Female

DRUGS (1)
  1. RIBOCICLIB. [Suspect]
     Active Substance: RIBOCICLIB
     Indication: BREAST CANCER
     Dosage: 600 MG, QD ONCE A DAY FOR 3 WEEKS, ONE WEEK OFF THEN REPEAT CYCLE
     Route: 048
     Dates: start: 20210715

REACTIONS (4)
  - Abdominal distension [Unknown]
  - Faecaloma [Unknown]
  - Nausea [Unknown]
  - Ascites [Unknown]

NARRATIVE: CASE EVENT DATE: 20210812
